FAERS Safety Report 6141526-2 (Version None)
Quarter: 2009Q2

REPORT INFORMATION
  Report Type: 
  Country: None (occurrence: None)
  Receive Date: 20090401
  Receipt Date: 20090401
  Transmission Date: 20091009
  Serious: Yes (Other)
  Sender: FDA-Public Use
  Company Number: None

PATIENT
  Sex: Female
  Weight: 73.4827 kg

DRUGS (1)
  1. PRIMACARE ONE 500 MG OMEGA 3S AND 1MG FOLIC THER-RX CORP. [Suspect]
     Indication: PRENATAL CARE
     Dosage: 1 PILL DAILY PO MID 2008 THRU MARCH 2009
     Route: 048
     Dates: start: 20080101, end: 20090301

REACTIONS (2)
  - ABORTION SPONTANEOUS [None]
  - PRODUCT QUALITY ISSUE [None]
